FAERS Safety Report 23815817 (Version 6)
Quarter: 2024Q2

REPORT INFORMATION
  Report Type: Report from Study
  Country: CA (occurrence: CA)
  Receive Date: 20240503
  Receipt Date: 20240625
  Transmission Date: 20240716
  Serious: Yes (Hospitalization, Other)
  Sender: FDA-Public Use
  Company Number: CA-TAKEDA-2024TUS041002

PATIENT
  Age: 17 Year
  Sex: Female

DRUGS (5)
  1. VEDOLIZUMAB [Suspect]
     Active Substance: VEDOLIZUMAB
     Indication: Colitis ulcerative
     Dosage: 300 MILLIGRAM
     Route: 042
     Dates: start: 20240426
  2. VEDOLIZUMAB [Suspect]
     Active Substance: VEDOLIZUMAB
     Dosage: 300 MILLIGRAM
     Route: 042
  3. PANTOPRAZOLE [Suspect]
     Active Substance: PANTOPRAZOLE
     Indication: Product used for unknown indication
     Dosage: 40 MILLIGRAM, QD
     Route: 065
  4. PENTASA [Concomitant]
     Active Substance: MESALAMINE
     Dosage: 1 MILLIGRAM
  5. Cortiment [Concomitant]
     Dosage: 9 MILLIGRAM

REACTIONS (11)
  - Rectal haemorrhage [Unknown]
  - Abdominal pain [Not Recovered/Not Resolved]
  - Colitis ulcerative [Unknown]
  - Off label use [Unknown]
  - Asthenia [Unknown]
  - Frequent bowel movements [Unknown]
  - Helminthic infection [Not Recovered/Not Resolved]
  - Blood pressure decreased [Not Recovered/Not Resolved]
  - Dizziness [Not Recovered/Not Resolved]
  - Discomfort [Not Recovered/Not Resolved]
  - Back pain [Not Recovered/Not Resolved]

NARRATIVE: CASE EVENT DATE: 20240426
